FAERS Safety Report 8349083-7 (Version None)
Quarter: 2012Q2

REPORT INFORMATION
  Report Type: 
  Country: None (occurrence: None)
  Receive Date: 20120508
  Receipt Date: 20120426
  Transmission Date: 20120825
  Serious: Yes (Hospitalization, Other)
  Sender: FDA-Public Use
  Company Number: 2012000107

PATIENT
  Age: 75 Year
  Sex: Male

DRUGS (9)
  1. DIAMICRON (GLICLAZIDE) [Concomitant]
  2. CALCITRIOL [Concomitant]
  3. ACEON [Suspect]
     Indication: PRODUCT USED FOR UNKNOWN INDICATION
     Dosage: 2 MG, QD, ORAL
     Route: 048
     Dates: start: 20111128, end: 20120401
  4. LASILIX (FUROSEMIDE) [Concomitant]
  5. ALLOPURINOL [Concomitant]
  6. LERCANIDIPINE [Concomitant]
  7. CRESTOR [Concomitant]
  8. ROCALTROL [Concomitant]
  9. SODIUM BICARBONATE [Concomitant]

REACTIONS (5)
  - HYPERKALAEMIA [None]
  - ANGIOEDEMA [None]
  - DYSARTHRIA [None]
  - DYSPNOEA [None]
  - SALIVARY HYPERSECRETION [None]
